FAERS Safety Report 10267293 (Version 3)
Quarter: 2014Q3

REPORT INFORMATION
  Report Type: Spontaneous
  Country: GB (occurrence: GB)
  Receive Date: 20140630
  Receipt Date: 20140812
  Transmission Date: 20150326
  Serious: Yes (Death, Hospitalization)
  Sender: FDA-Public Use
  Company Number: PHFR2014GB003326

PATIENT
  Age: 47 Year
  Sex: Male

DRUGS (7)
  1. VITAMIN B [Concomitant]
     Active Substance: VITAMIN B
     Indication: ALCOHOL WITHDRAWAL SYNDROME
     Dosage: 2 TAB, UNK
     Route: 048
     Dates: start: 20140423
  2. CLOZARIL [Suspect]
     Active Substance: CLOZAPINE
     Indication: SCHIZOPHRENIA
     Dosage: UKN
     Route: 048
     Dates: start: 20010801
  3. OLANZAPINE. [Concomitant]
     Active Substance: OLANZAPINE
     Indication: PSYCHOTIC DISORDER
     Dosage: 20 MG, UNK
     Route: 048
     Dates: start: 20140423
  4. CLOZARIL [Suspect]
     Active Substance: CLOZAPINE
     Indication: SCHIZOPHRENIA, PARANOID TYPE
     Dosage: 400 MG, DAILY
     Route: 048
     Dates: start: 20100225, end: 20140506
  5. LORAZEPAM. [Concomitant]
     Active Substance: LORAZEPAM
     Indication: AGITATION
     Dosage: 3 MG, UNK
     Route: 048
     Dates: start: 20140423
  6. ZOPICLONE [Concomitant]
     Active Substance: ZOPICLONE
     Indication: INSOMNIA
     Dosage: 7.5 MG, UNK
     Route: 048
     Dates: start: 20140423
  7. THIAMINE [Concomitant]
     Active Substance: THIAMINE
     Indication: ALCOHOL WITHDRAWAL SYNDROME
     Dosage: 200 MG, UNK
     Route: 048
     Dates: start: 20140423

REACTIONS (14)
  - Pleural effusion [Fatal]
  - Haematemesis [Fatal]
  - Liver disorder [Fatal]
  - Cardiac failure congestive [Fatal]
  - Hepatitis viral [Fatal]
  - Neutrophil count increased [Unknown]
  - Malaise [Fatal]
  - Hepatitis [Fatal]
  - Ascites [Fatal]
  - White blood cell count increased [Unknown]
  - Renal failure acute [Fatal]
  - Crohn^s disease [Fatal]
  - Blood potassium decreased [Fatal]
  - Pneumonia [Fatal]

NARRATIVE: CASE EVENT DATE: 20140423
